FAERS Safety Report 20986532 (Version 1)
Quarter: 2022Q2

REPORT INFORMATION
  Report Type: Spontaneous
  Country: US (occurrence: None)
  Receive Date: 20220618
  Receipt Date: 20220618
  Transmission Date: 20220721
  Serious: No
  Sender: FDA-Public Use
  Company Number: None

PATIENT
  Age: 82 Year
  Sex: Female
  Weight: 120.84 kg

DRUGS (15)
  1. IBRANCE [Suspect]
     Active Substance: PALBOCICLIB
     Indication: Breast cancer
     Dosage: 125MG QD ORAL
     Route: 048
     Dates: start: 20220107, end: 20220516
  2. CALCIUM [Concomitant]
     Active Substance: CALCIUM
  3. PROCHLORPERAZINE [Concomitant]
     Active Substance: PROCHLORPERAZINE
  4. DILTIAZEM [Concomitant]
     Active Substance: DILTIAZEM
  5. EZETIMIBE [Concomitant]
     Active Substance: EZETIMIBE
  6. FLUTICASONE [Concomitant]
     Active Substance: FLUTICASONE
  7. GABAPENTIN [Concomitant]
     Active Substance: GABAPENTIN
  8. HYDROCODONE BITARTRATE AND ACETAMINOPHEN [Concomitant]
     Active Substance: ACETAMINOPHEN\HYDROCODONE BITARTRATE
  9. LEVO-T LOSARTAN [Concomitant]
  10. PANTOPRAZOLE [Concomitant]
     Active Substance: PANTOPRAZOLE
  11. POTASSIUM CHLORIDE [Concomitant]
     Active Substance: POTASSIUM CHLORIDE
  12. PRAVASTATIN [Concomitant]
     Active Substance: PRAVASTATIN
  13. PROAIR HFA [Concomitant]
     Active Substance: ALBUTEROL SULFATE
  14. SPIRIVA [Concomitant]
     Active Substance: TIOTROPIUM BROMIDE MONOHYDRATE
  15. VITAMIN D2 [Concomitant]
     Active Substance: ERGOCALCIFEROL

REACTIONS (1)
  - Disease progression [None]

NARRATIVE: CASE EVENT DATE: 20220617
